FAERS Safety Report 24547682 (Version 4)
Quarter: 2025Q1

REPORT INFORMATION
  Report Type: Report from Study
  Country: US (occurrence: US)
  Receive Date: 20241025
  Receipt Date: 20250102
  Transmission Date: 20250408
  Serious: Yes (Hospitalization)
  Sender: ROCHE
  Company Number: US-ROCHE-10000098784

PATIENT
  Age: 55 Year
  Sex: Male

DRUGS (30)
  1. OCRELIZUMAB [Suspect]
     Active Substance: OCRELIZUMAB
     Indication: Multiple sclerosis
     Route: 065
     Dates: start: 20201104, end: 20231120
  2. OCRELIZUMAB [Suspect]
     Active Substance: OCRELIZUMAB
     Route: 065
     Dates: start: 20210519, end: 20231120
  3. OCRELIZUMAB [Suspect]
     Active Substance: OCRELIZUMAB
     Route: 065
     Dates: start: 20201104, end: 20201104
  4. OCRELIZUMAB [Suspect]
     Active Substance: OCRELIZUMAB
     Route: 065
     Dates: start: 20201118, end: 20201118
  5. OCRELIZUMAB [Suspect]
     Active Substance: OCRELIZUMAB
     Route: 065
     Dates: start: 20210519, end: 20231120
  6. VITAMIN B12 [Concomitant]
     Active Substance: CYANOCOBALAMIN
  7. VITAMIN D3 [Concomitant]
     Active Substance: CHOLECALCIFEROL
     Dates: start: 20140311
  8. ZINC [Concomitant]
     Active Substance: ZINC
  9. DALFAMPRIDINE [Concomitant]
     Active Substance: DALFAMPRIDINE
  10. TIZANIDINE [Concomitant]
     Active Substance: TIZANIDINE
     Dates: end: 20210201
  11. BACLOFEN [Concomitant]
     Active Substance: BACLOFEN
     Dates: start: 20210201, end: 2021
  12. HERBALS [Concomitant]
     Active Substance: HERBALS
     Dates: start: 2024
  13. IOHEXOL [Concomitant]
     Active Substance: IOHEXOL
     Dates: start: 20240312, end: 20240313
  14. LACTATED RINGERS SOLUTION [Concomitant]
     Active Substance: CALCIUM CHLORIDE\POTASSIUM CHLORIDE\SODIUM CHLORIDE\SODIUM LACTATE
     Dates: start: 20240312, end: 20240313
  15. HYDROCORTISONE SODIUM SUCCINATE [Concomitant]
     Active Substance: HYDROCORTISONE SODIUM SUCCINATE
     Dates: start: 20240312, end: 20240313
  16. RITUXIMAB [Concomitant]
     Active Substance: RITUXIMAB
     Dates: start: 20240327, end: 20240328
  17. FUROSEMIDE [Concomitant]
     Active Substance: FUROSEMIDE
     Indication: Hypoxia
     Dates: start: 20240321, end: 20240321
  18. FUROSEMIDE [Concomitant]
     Active Substance: FUROSEMIDE
     Dates: start: 20240325, end: 20240325
  19. ACETAMINOPHEN [Concomitant]
     Active Substance: ACETAMINOPHEN
     Dates: start: 20240312, end: 20240403
  20. PIPERACILLIN [Concomitant]
     Active Substance: PIPERACILLIN
     Dates: start: 20240312, end: 20240402
  21. DOXYCYCLINE [Concomitant]
     Active Substance: DOXYCYCLINE
     Dates: start: 202402, end: 202403
  22. MORPHINE [Concomitant]
     Active Substance: MORPHINE
     Dates: start: 20240321, end: 20240321
  23. PREDNISONE [Concomitant]
     Active Substance: PREDNISONE
     Dates: start: 20240312, end: 20240409
  24. THIAMINE [Concomitant]
     Active Substance: THIAMINE
     Dates: start: 202403, end: 20240402
  25. POLYETHYLENE GLYCOL [Concomitant]
     Active Substance: POLYETHYLENE GLYCOL
     Dates: start: 2024, end: 2024
  26. REMDESIVIR [Concomitant]
     Active Substance: REMDESIVIR
     Dates: start: 20240403, end: 20240413
  27. PRECEDEX [Concomitant]
     Active Substance: DEXMEDETOMIDINE HYDROCHLORIDE
     Dates: start: 20240404, end: 20240404
  28. FLUCONAZOLE [Concomitant]
     Active Substance: FLUCONAZOLE
     Dates: start: 202403, end: 202404
  29. NYSTATIN [Concomitant]
     Active Substance: NYSTATIN
     Dates: start: 202403, end: 202404
  30. SULFAMETHOXAZOLE [Concomitant]
     Active Substance: SULFAMETHOXAZOLE

REACTIONS (1)
  - Acute respiratory failure [Recovered/Resolved]

NARRATIVE: CASE EVENT DATE: 20240312
